FAERS Safety Report 23836565 (Version 2)
Quarter: 2024Q2

REPORT INFORMATION
  Report Type: Report from Study
  Country: US (occurrence: US)
  Receive Date: 20240509
  Receipt Date: 20240528
  Transmission Date: 20240716
  Serious: Yes (Other)
  Sender: FDA-Public Use
  Company Number: US-BAXTER-2024BAX017930

PATIENT
  Age: 39 Year
  Sex: Female
  Weight: 77.9 kg

DRUGS (3)
  1. DOXIL [Suspect]
     Active Substance: DOXORUBICIN HYDROCHLORIDE
     Indication: Triple negative breast cancer
     Dosage: 71.6 MG, CYCLIC: Q4WKS
     Route: 042
     Dates: start: 20230908, end: 20240419
  2. AVELUMAB [Suspect]
     Active Substance: AVELUMAB
     Indication: Triple negative breast cancer
     Dosage: 737 MG, CYCLIC: Q2WKS
     Route: 042
     Dates: start: 20230908, end: 20240419
  3. BINIMETINIB [Suspect]
     Active Substance: BINIMETINIB
     Indication: Triple negative breast cancer
     Dosage: 30 MG, 2X/DAY (BID)
     Route: 048
     Dates: start: 20230825, end: 20240403

REACTIONS (1)
  - Infusion related reaction [Recovered/Resolved]

NARRATIVE: CASE EVENT DATE: 20240419
